FAERS Safety Report 8229299-0 (Version None)
Quarter: 2012Q1

REPORT INFORMATION
  Report Type: 
  Country: None (occurrence: None)
  Receive Date: 20120322
  Receipt Date: 20120319
  Transmission Date: 20120608
  Serious: Yes (Disabling, Other)
  Sender: FDA-Public Use
  Company Number: US-PFIZER INC-2012039472

PATIENT
  Age: 52 Year
  Sex: Female
  Weight: 61.224 kg

DRUGS (3)
  1. PAXIL [Suspect]
     Indication: PANIC ATTACK
  2. PAXIL [Suspect]
     Indication: DEPRESSION
     Dosage: 150 MG, DAILY
  3. ALPRAZOLAM [Suspect]
     Indication: PANIC ATTACK
     Dosage: 2 MG, 4X/DAY

REACTIONS (3)
  - MUSCLE DISORDER [None]
  - FALL [None]
  - ABASIA [None]
